FAERS Safety Report 10795464 (Version 2)
Quarter: 2015Q1

REPORT INFORMATION
  Report Type: Spontaneous
  Country: US (occurrence: US)
  Receive Date: 20150215
  Receipt Date: 20150215
  Transmission Date: 20150721
  Serious: Yes (Other)
  Sender: FDA-Public Use
  Company Number: US-ACTAVIS-2015-01683

PATIENT
  Age: 66 Year
  Sex: Male

DRUGS (5)
  1. CYCLOSPORINE (WATSON LABORATORIES) [Suspect]
     Active Substance: CYCLOSPORINE
     Indication: BURKITT^S LYMPHOMA
     Dosage: UNK, 4 CYCLES
     Route: 065
  2. DOXORUBICIN HYDROCHLORIDE (ACTAVIS INC) [Suspect]
     Active Substance: DOXORUBICIN HYDROCHLORIDE
     Indication: BURKITT^S LYMPHOMA
     Dosage: UNK, 4CYCLES
     Route: 065
  3. VINCRISTINE (UNKNOWN) [Suspect]
     Active Substance: VINCRISTINE
     Indication: BURKITT^S LYMPHOMA
     Dosage: UNK, 4CYCLES
     Route: 065
  4. RITUXIMAB [Suspect]
     Active Substance: RITUXIMAB
     Indication: BURKITT^S LYMPHOMA
     Dosage: UNK
     Route: 065
  5. DEXAMETHASONE (WATSON LABORATORIES) [Suspect]
     Active Substance: DEXAMETHASONE
     Indication: BURKITT^S LYMPHOMA
     Dosage: UNK, 4CYCLES
     Route: 065

REACTIONS (5)
  - Epstein-Barr virus associated lymphoma [Unknown]
  - Pneumonia [Unknown]
  - Herpes zoster [Unknown]
  - Upper respiratory tract infection [Unknown]
  - Cytomegalovirus chorioretinitis [Unknown]
